FAERS Safety Report 16624476 (Version 1)
Quarter: 2019Q3

REPORT INFORMATION
  Report Type: Spontaneous
  Country: US (occurrence: US)
  Receive Date: 20190611
  Receipt Date: 20190611
  Transmission Date: 20191004
  Serious: No
  Sender: FDA-Public Use
  Company Number: None

PATIENT
  Age: 62 Year
  Sex: Female
  Weight: 68.04 kg

DRUGS (1)
  1. TYMLOS [Suspect]
     Active Substance: ABALOPARATIDE
     Indication: SENILE OSTEOPOROSIS
     Dosage: ?          OTHER STRENGTH:3120/1.56 UG/ML;?
     Route: 058
     Dates: start: 201905

REACTIONS (10)
  - Bone pain [None]
  - Therapy cessation [None]
  - Ear pain [None]
  - Pain in jaw [None]
  - Headache [None]
  - Multiple fractures [None]
  - Hypoaesthesia [None]
  - Crepitations [None]
  - Chills [None]
  - Osteoporosis [None]
